FAERS Safety Report 24467574 (Version 1)
Quarter: 2024Q4

REPORT INFORMATION
  Report Type: Report from Study
  Country: US (occurrence: US)
  Receive Date: 20241018
  Receipt Date: 20241018
  Transmission Date: 20250115
  Serious: No
  Sender: ROCHE
  Company Number: US-ROCHE-3576321

PATIENT

DRUGS (4)
  1. XOLAIR [Suspect]
     Active Substance: OMALIZUMAB
     Indication: Rheumatoid arthritis
     Route: 065
  2. FAMOTIDINE [Concomitant]
     Active Substance: FAMOTIDINE
  3. MONTELUKAST [Concomitant]
     Active Substance: MONTELUKAST
  4. FEXO [Concomitant]

REACTIONS (3)
  - Blood immunoglobulin E decreased [Unknown]
  - Antinuclear antibody positive [Unknown]
  - Rheumatoid arthritis [Unknown]
